FAERS Safety Report 8002133-X (Version None)
Quarter: 2011Q4

REPORT INFORMATION
  Report Type: 
  Country: None (occurrence: None)
  Receive Date: 20111222
  Receipt Date: 20111215
  Transmission Date: 20120403
  Serious: Yes (Other)
  Sender: FDA-Public Use
  Company Number: DE-ROCHE-1022674

PATIENT
  Sex: Female
  Weight: 57 kg

DRUGS (1)
  1. MABTHERA [Suspect]
     Indication: B-CELL LYMPHOMA
     Route: 042
     Dates: start: 20110307, end: 20110307

REACTIONS (1)
  - B-CELL LYMPHOMA RECURRENT [None]
